FAERS Safety Report 7068222-1 (Version None)
Quarter: 2010Q4

REPORT INFORMATION
  Report Type: 
  Country: None (occurrence: None)
  Receive Date: 20101020
  Receipt Date: 20101005
  Transmission Date: 20110411
  Serious: Yes (Hospitalization)
  Sender: FDA-Public Use
  Company Number: 2010PV000074

PATIENT
  Age: 6 Year
  Sex: Male

DRUGS (3)
  1. DEPOCYT [Suspect]
     Indication: ACUTE LYMPHOCYTIC LEUKAEMIA
     Dosage: 34 MG; 9 DOSES; INTH
     Route: 037
     Dates: start: 20091125, end: 20100616
  2. DEXAMETHASONE [Concomitant]
  3. PURINETHOL [Concomitant]

REACTIONS (5)
  - FATIGUE [None]
  - HEADACHE [None]
  - INTRACRANIAL PRESSURE INCREASED [None]
  - MALNUTRITION [None]
  - VOMITING [None]
